FAERS Safety Report 14974789 (Version 1)
Quarter: 2018Q2

REPORT INFORMATION
  Report Type: Spontaneous
  Country: AU (occurrence: AU)
  Receive Date: 20180605
  Receipt Date: 20180605
  Transmission Date: 20180711
  Serious: Yes (Hospitalization)
  Sender: FDA-Public Use
  Company Number: AU-PFIZER INC-2018184477

PATIENT
  Age: 82 Year
  Sex: Female
  Weight: 51.4 kg

DRUGS (18)
  1. CHAMPIX [Suspect]
     Active Substance: VARENICLINE TARTRATE
     Dosage: 1 MG, 2X/DAY
     Route: 048
     Dates: end: 20180501
  2. LACTULOSE. [Concomitant]
     Active Substance: LACTULOSE
     Dosage: 10-20 ML DAILY, AS NEEDED
  3. LEVOTHYROXINE. [Concomitant]
     Active Substance: LEVOTHYROXINE
     Dosage: 0.1 MG DAILY MONDAY TO FRIDAY
  4. OSTEVIT-D [Concomitant]
     Dosage: 1000 IU, 1X/DAY
  5. TEMAZE [Concomitant]
     Active Substance: TEMAZEPAM
     Dosage: HALF TO ONE TABLET BEFORE BED AS NEEDED
  6. ATORVASTATIN [Concomitant]
     Active Substance: ATORVASTATIN
     Dosage: 20 MG,1X DAILY
  7. SYSTANE (HYPROMELLOSE 2910 (4000 MPA.S)) [Concomitant]
     Active Substance: HYPROMELLOSE 2910 (4000 MPA.S)
     Dosage: 2 DROPS IN EACH EYE
  8. LITHICARB [Suspect]
     Active Substance: LITHIUM CARBONATE
     Dosage: 500 M G (2 TABLETS), MORNING
  9. ARIMIDEX [Concomitant]
     Active Substance: ANASTROZOLE
     Dosage: 1 MG, 1X/DAY
  10. CELESTONE M [Concomitant]
     Dosage: APPLY TWICE A DAY AS NEEDED
  11. ATOZET [Concomitant]
     Active Substance: ATORVASTATIN CALCIUM\EZETIMIBE
     Dosage: 2 DF, MORNING
  12. EZETROL [Concomitant]
     Active Substance: EZETIMIBE
     Dosage: 10 MG, 1X/DAY
  13. MOCLOBEMIDE [Concomitant]
     Active Substance: MOCLOBEMIDE
     Dosage: 150 MG AT MIDDAY
  14. MOCLOBEMIDE [Concomitant]
     Active Substance: MOCLOBEMIDE
     Dosage: 300 MG IN THE MORNING
  15. PANADOL [Concomitant]
     Active Substance: ACETAMINOPHEN
     Dosage: 2 TABLETS THREE TIMES A DAY AS NEEDED
  16. QUETIAPINE. [Concomitant]
     Active Substance: QUETIAPINE
     Dosage: HALF TO ONE TABLET IN THE EVENING, AS NEEDED
  17. CHAMPIX [Suspect]
     Active Substance: VARENICLINE TARTRATE
     Indication: SMOKING CESSATION THERAPY
     Dosage: 0.5 MG, UNK
     Route: 048
     Dates: start: 20180406
  18. ELOCON [Concomitant]
     Active Substance: MOMETASONE FUROATE
     Dosage: APPLY ONCE DAILY TO AFFECTED AREA, AS NEEDED

REACTIONS (3)
  - Nephrogenic diabetes insipidus [Recovering/Resolving]
  - Constipation [Recovering/Resolving]
  - Influenza like illness [Recovering/Resolving]

NARRATIVE: CASE EVENT DATE: 20180424
